FAERS Safety Report 9551692 (Version 1)
Quarter: 2013Q3

REPORT INFORMATION
  Report Type: Spontaneous
  Country: US (occurrence: None)
  Receive Date: 20130923
  Receipt Date: 20130923
  Transmission Date: 20140515
  Serious: No
  Sender: FDA-Public Use
  Company Number: None

PATIENT
  Age: 47 Year
  Sex: Female

DRUGS (2)
  1. PEGASYS [Suspect]
     Indication: HEPATITIS C
     Dosage: UNECT 0.5 ML (180 MCG) UNDER THE SKIN ONCE A WEEK
     Dates: start: 20130813, end: 20130904
  2. RIBASPHERE [Concomitant]

REACTIONS (3)
  - Platelet count decreased [None]
  - Haematocrit decreased [None]
  - Blood pressure decreased [None]
